FAERS Safety Report 18232479 (Version 1)
Quarter: 2020Q3

REPORT INFORMATION
  Report Type: Spontaneous
  Country: US (occurrence: US)
  Receive Date: 20200904
  Receipt Date: 20200904
  Transmission Date: 20201103
  Serious: Yes (Hospitalization)
  Sender: FDA-Public Use
  Company Number: None

PATIENT
  Sex: Male
  Weight: 94.7 kg

DRUGS (4)
  1. CISPLATIN (119875) [Suspect]
     Active Substance: CISPLATIN
     Dates: end: 20200825
  2. DEXAMETHASONE. [Concomitant]
     Active Substance: DEXAMETHASONE
  3. AMITRIPTYLINE [Concomitant]
     Active Substance: AMITRIPTYLINE
  4. ALPRAZOLAM. [Concomitant]
     Active Substance: ALPRAZOLAM

REACTIONS (6)
  - Hypophagia [None]
  - Suicidal ideation [None]
  - Oropharyngeal pain [None]
  - Insomnia [None]
  - Fatigue [None]
  - Pain [None]

NARRATIVE: CASE EVENT DATE: 20200828
